FAERS Safety Report 26206202 (Version 1)
Quarter: 2025Q4

REPORT INFORMATION
  Report Type: Spontaneous
  Country: GB (occurrence: GB)
  Receive Date: 20251229
  Receipt Date: 20251229
  Transmission Date: 20260117
  Serious: Yes (Life-Threatening, Hospitalization)
  Sender: TEVA
  Company Number: GB-TEVA-VS-3407183

PATIENT
  Age: 65 Year
  Sex: Female

DRUGS (2)
  1. PREDNISOLONE [Suspect]
     Active Substance: PREDNISOLONE
     Indication: Dermatomyositis
     Dosage: HIGH-DOSE
     Route: 048
  2. METHYLPREDNISOLONE [Suspect]
     Active Substance: METHYLPREDNISOLONE
     Indication: Dermatomyositis
     Dosage: PULSE
     Route: 042

REACTIONS (6)
  - Euglycaemic diabetic ketoacidosis [Recovered/Resolved]
  - Delirium [Unknown]
  - Drug ineffective [Unknown]
  - Gastrointestinal haemorrhage [Unknown]
  - Stress fracture [Unknown]
  - Pathological fracture [Unknown]
